FAERS Safety Report 10136391 (Version 1)
Quarter: 2014Q2

REPORT INFORMATION
  Report Type: Spontaneous
  Country: US (occurrence: None)
  Receive Date: 20140428
  Receipt Date: 20140428
  Transmission Date: 20141212
  Serious: Yes (Death)
  Sender: FDA-Public Use
  Company Number: None

PATIENT
  Age: 80 Year
  Sex: Male

DRUGS (5)
  1. DECITABINE [Suspect]
     Indication: ACUTE MYELOID LEUKAEMIA
     Dosage: 20 MG/M2, QD X 10, 28 DAY CYCLE
     Dates: start: 20140312, end: 20140320
  2. ACETAMIINOPHEN [Concomitant]
  3. ONDANSETRON INJECTABLE SOLUTION [Concomitant]
  4. ROXANOL [Concomitant]
  5. LASIX [Concomitant]

REACTIONS (1)
  - Decreased activity [None]
